FAERS Safety Report 5765141-5 (Version None)
Quarter: 2008Q2

REPORT INFORMATION
  Report Type: 
  Country: None (occurrence: None)
  Receive Date: 20080605
  Receipt Date: 20080521
  Transmission Date: 20081010
  Serious: Yes (Hospitalization, Other)
  Sender: FDA-Public Use
  Company Number: 07-002065

PATIENT
  Age: 59 Year
  Sex: Male

DRUGS (3)
  1. TACLONEX [Suspect]
     Indication: PSORIASIS
     Dosage: TOPICAL
     Route: 061
     Dates: start: 20070101
  2. BISEPTINE /01186301/(BENZALKONIUM CHLORIDE, BENZYL ALCOHOL CHLORHEXIDI [Suspect]
     Dates: start: 20070101
  3. EOSINE (EOSINE) [Concomitant]

REACTIONS (2)
  - DERMATITIS CONTACT [None]
  - PUSTULAR PSORIASIS [None]
